FAERS Safety Report 8318709 (Version 2)
Quarter: 2013Q1

REPORT INFORMATION
  Report Type: Spontaneous
  Country: US (occurrence: US)
  Receive Date: 20120103
  Receipt Date: 20130225
  Transmission Date: 20140127
  Serious: Yes (Life-Threatening, Congenital Anomaly, Other)
  Sender: FDA-Public Use
  Company Number: US-PFIZER INC-2011289537

PATIENT
  Sex: Male

DRUGS (11)
  1. ZOLOFT [Suspect]
     Dosage: UNK
     Route: 064
     Dates: start: 2003, end: 2008
  2. LORATADINE [Concomitant]
     Dosage: UNK
     Route: 064
  3. ALBUTEROL [Concomitant]
     Dosage: UNK
     Route: 064
  4. PRENATAL VITAMINS [Concomitant]
     Dosage: UNK
     Route: 064
  5. ADVAIR [Concomitant]
     Dosage: UNK
     Route: 064
  6. NYSTATIN [Concomitant]
     Dosage: UNK
     Route: 064
  7. NASOCORT [Concomitant]
     Dosage: UNK
     Route: 064
  8. NASONEX [Concomitant]
     Dosage: UNK
     Route: 064
  9. OXYCODONE [Concomitant]
     Dosage: UNK
     Route: 064
  10. NAPROXEN [Concomitant]
     Dosage: UNK
     Route: 064
  11. METROGEL [Concomitant]
     Dosage: UNK
     Route: 064

REACTIONS (2)
  - Maternal exposure timing unspecified [Unknown]
  - Persistent foetal circulation [Unknown]
